FAERS Safety Report 11358824 (Version 1)
Quarter: 2015Q3

REPORT INFORMATION
  Report Type: Report from Study
  Country: US (occurrence: None)
  Receive Date: 20150807
  Receipt Date: 20150807
  Transmission Date: 20151125
  Serious: Yes (Hospitalization, Other)
  Sender: FDA-Public Use
  Company Number: US-2015CRT000528

PATIENT
  Age: 70 Year
  Sex: Female
  Weight: 77.1 kg

DRUGS (31)
  1. HYDRALAZINE [Concomitant]
     Active Substance: HYDRALAZINE HYDROCHLORIDE
  2. FOLIC ACID. [Concomitant]
     Active Substance: FOLIC ACID
  3. CLONAZEPAM. [Concomitant]
     Active Substance: CLONAZEPAM
  4. HYDROCODONE [Concomitant]
     Active Substance: HYDROCODONE
  5. VITAMIN D [Concomitant]
     Active Substance: CHOLECALCIFEROL
  6. OXYCODONE HCL (OXYCODONE HYDROCHLORIDE) [Concomitant]
     Active Substance: OXYCODONE HYDROCHLORIDE
  7. DOCUSATE [Concomitant]
     Active Substance: DOCUSATE
  8. DULCOLAX (BISACODYL) [Concomitant]
     Active Substance: BISACODYL
  9. CYCLOBENZAPRINE [Concomitant]
     Active Substance: CYCLOBENZAPRINE
  10. VITAMIN B12 [Concomitant]
     Active Substance: CYANOCOBALAMIN
  11. QUININE SULFATE. [Concomitant]
     Active Substance: QUININE SULFATE
  12. HUMULIN MIX [Concomitant]
  13. LEVOTHYROXINE. [Concomitant]
     Active Substance: LEVOTHYROXINE
  14. NICARDIPINE [Concomitant]
     Active Substance: NICARDIPINE
  15. KCL [Concomitant]
     Active Substance: POTASSIUM CHLORIDE
  16. NITROSTAT [Concomitant]
     Active Substance: NITROGLYCERIN
  17. CLONIDINE HCL [Concomitant]
     Active Substance: CLONIDINE HYDROCHLORIDE
  18. PLAVIX [Concomitant]
     Active Substance: CLOPIDOGREL BISULFATE
  19. KORLYM [Suspect]
     Active Substance: MIFEPRISTONE
     Indication: CUSHING^S SYNDROME
     Route: 048
     Dates: start: 20150408, end: 201505
  20. GABAPENTIN. [Concomitant]
     Active Substance: GABAPENTIN
  21. PRIMIDONE. [Concomitant]
     Active Substance: PRIMIDONE
  22. NIFEDIPINE. [Concomitant]
     Active Substance: NIFEDIPINE
  23. FERROUS SULFATE [Concomitant]
     Active Substance: FERROUS SULFATE\FERROUS SULFATE, DRIED
  24. PRAMIPEXOLE. [Concomitant]
     Active Substance: PRAMIPEXOLE
  25. LABETALOL [Concomitant]
     Active Substance: LABETALOL\LABETALOL HYDROCHLORIDE
  26. AMITRIPTYLINE [Concomitant]
     Active Substance: AMITRIPTYLINE
  27. FUROSEMIDE. [Concomitant]
     Active Substance: FUROSEMIDE
  28. SERTRALINE [Concomitant]
     Active Substance: SERTRALINE HYDROCHLORIDE
  29. ATORVASTATIN [Concomitant]
     Active Substance: ATORVASTATIN
  30. MELATONIN [Concomitant]
     Active Substance: MELATONIN
  31. BACLOFEN. [Concomitant]
     Active Substance: BACLOFEN

REACTIONS (12)
  - Fall [None]
  - Hip fracture [None]
  - Fatigue [None]
  - Injury [None]
  - Pelvic fracture [None]
  - Loss of consciousness [None]
  - Ankle fracture [None]
  - Speech disorder [None]
  - Fractured coccyx [None]
  - Blood pressure increased [None]
  - Inappropriate schedule of drug administration [None]
  - Activities of daily living impaired [None]
